FAERS Safety Report 9269945 (Version 1)
Quarter: 2013Q2

REPORT INFORMATION
  Report Type: Spontaneous
  Country: US (occurrence: US)
  Receive Date: 20130503
  Receipt Date: 20130503
  Transmission Date: 20140414
  Serious: No
  Sender: FDA-Public Use
  Company Number: US-PFIZER INC-2013138602

PATIENT
  Age: 65 Year
  Sex: Female

DRUGS (2)
  1. LYRICA [Suspect]
     Dosage: 300 MG, 1X/DAY
  2. LYRICA [Suspect]
     Dosage: 150 MG, 1X/DAY

REACTIONS (2)
  - Oedema peripheral [Recovered/Resolved]
  - Drug effect incomplete [Unknown]
